FAERS Safety Report 10244724 (Version 1)
Quarter: 2014Q2

REPORT INFORMATION
  Report Type: Spontaneous
  Country: US (occurrence: US)
  Receive Date: 20140618
  Receipt Date: 20140618
  Transmission Date: 20141212
  Serious: Yes (Hospitalization)
  Sender: FDA-Public Use
  Company Number: US-PFIZER INC-2014165983

PATIENT
  Age: 66 Year
  Sex: Female
  Weight: 48.53 kg

DRUGS (2)
  1. AMLODIPINE BESILATE [Suspect]
     Indication: HYPERTENSION
     Dosage: 10 MG, DAILY
  2. AMLODIPINE BESILATE [Suspect]
     Dosage: 5 MG, DAILY

REACTIONS (1)
  - Malaise [Unknown]
